FAERS Safety Report 14904022 (Version 1)
Quarter: 2018Q2

REPORT INFORMATION
  Report Type: Spontaneous
  Country: US (occurrence: US)
  Receive Date: 20180516
  Receipt Date: 20180516
  Transmission Date: 20180711
  Serious: Yes (Other)
  Sender: FDA-Public Use
  Company Number: PHHY2018US006078

PATIENT
  Age: 59 Year
  Sex: Male

DRUGS (1)
  1. ITRACONAZOLE. [Suspect]
     Active Substance: ITRACONAZOLE
     Indication: COCCIDIOIDOMYCOSIS
     Dosage: 300 MG, BID
     Route: 048

REACTIONS (5)
  - Hypokalaemia [Recovering/Resolving]
  - Hypertension [Recovering/Resolving]
  - Renin decreased [Recovering/Resolving]
  - Apparent mineralocorticoid excess [Recovering/Resolving]
  - Metabolic alkalosis [Recovering/Resolving]
